FAERS Safety Report 17895127 (Version 3)
Quarter: 2020Q3

REPORT INFORMATION
  Report Type: Spontaneous
  Country: US (occurrence: US)
  Receive Date: 20200615
  Receipt Date: 20200930
  Transmission Date: 20201103
  Serious: Yes (Hospitalization, Other)
  Sender: FDA-Public Use
  Company Number: US-PFIZER INC-2020231711

PATIENT
  Age: 51 Year
  Sex: Female

DRUGS (3)
  1. XELJANZ XR [Suspect]
     Active Substance: TOFACITINIB CITRATE
     Indication: RHEUMATOID ARTHRITIS
  2. XELJANZ XR [Suspect]
     Active Substance: TOFACITINIB CITRATE
     Indication: PSORIATIC ARTHROPATHY
     Dosage: 11 MG, 1X/DAY
     Route: 048
     Dates: start: 202003
  3. METHOTREXATE. [Concomitant]
     Active Substance: METHOTREXATE
     Dosage: UNK

REACTIONS (12)
  - Hyponatraemic syndrome [Recovering/Resolving]
  - Anosmia [Unknown]
  - Pain in extremity [Unknown]
  - Confusional state [Recovering/Resolving]
  - Dehydration [Recovering/Resolving]
  - Autoimmune thyroiditis [Unknown]
  - Pyrexia [Unknown]
  - Headache [Unknown]
  - Depression [Unknown]
  - Musculoskeletal stiffness [Unknown]
  - Ageusia [Unknown]
  - Vomiting [Recovering/Resolving]
